FAERS Safety Report 7903839-0 (Version None)
Quarter: 2011Q4

REPORT INFORMATION
  Report Type: 
  Country: None (occurrence: None)
  Receive Date: 20111109
  Receipt Date: 20111107
  Transmission Date: 20120403
  Serious: Yes (Other)
  Sender: FDA-Public Use
  Company Number: US-PFIZER INC-2011272969

PATIENT
  Age: 61 Year
  Sex: Male
  Weight: 83.9 kg

DRUGS (2)
  1. TRUSOPT [Concomitant]
     Indication: EYE DISORDER
     Dosage: UNK, DAILY
  2. XALATAN [Suspect]
     Indication: ABNORMAL SENSATION IN EYE
     Dosage: UNK, TWO TIMES A DAY
     Route: 047
     Dates: start: 20080101

REACTIONS (1)
  - INTRAOCULAR PRESSURE INCREASED [None]
